FAERS Safety Report 6093935-8 (Version None)
Quarter: 2009Q1

REPORT INFORMATION
  Report Type: 
  Country: None (occurrence: None)
  Receive Date: 20090226
  Receipt Date: 20090220
  Transmission Date: 20090719
  Serious: Yes (Other)
  Sender: FDA-Public Use
  Company Number: A0769499A

PATIENT
  Sex: Female

DRUGS (2)
  1. LAMICTAL [Suspect]
     Indication: EPILEPSY
     Dosage: 700MG VARIABLE DOSE
     Route: 048
  2. ORAL CONTRACEPTIVES [Concomitant]

REACTIONS (4)
  - CONVULSION [None]
  - DIPLOPIA [None]
  - LOSS OF EMPLOYMENT [None]
  - STARING [None]
